FAERS Safety Report 12262066 (Version 2)
Quarter: 2016Q2

REPORT INFORMATION
  Report Type: Other
  Country: GB (occurrence: GB)
  Receive Date: 20160413
  Receipt Date: 20160414
  Transmission Date: 20160815
  Serious: Yes (Other)
  Sender: FDA-Public Use
  Company Number: GB-CIPLA LTD.-2016GB03653

PATIENT

DRUGS (4)
  1. TROSPIUM [Concomitant]
     Active Substance: TROSPIUM
     Indication: HYPERTONIC BLADDER
     Dosage: 60 MG, QD, AT NIGHT
     Route: 048
     Dates: start: 201401
  2. HYDROXYZINE [Suspect]
     Active Substance: HYDROXYZINE\HYDROXYZINE HYDROCHLORIDE
     Indication: BLADDER DISORDER
     Dosage: 25 MG, QD, AT NIGHT
     Route: 048
     Dates: start: 201504, end: 20160309
  3. CITALOPRAM [Suspect]
     Active Substance: CITALOPRAM HYDROBROMIDE
     Indication: DEPRESSION
     Dosage: 30 MG, QD
     Route: 048
  4. MICROGYNON [Concomitant]
     Active Substance: ETHINYL ESTRADIOL\LEVONORGESTREL ACETATE
     Dosage: 1 DF, QD, ON AND OFF FOR YEARS
     Route: 048

REACTIONS (2)
  - Contraindicated drug administered [Unknown]
  - Electrocardiogram QT prolonged [Recovered/Resolved]
